FAERS Safety Report 11638026 (Version 1)
Quarter: 2015Q4

REPORT INFORMATION
  Report Type: Spontaneous
  Country: US (occurrence: US)
  Receive Date: 20151016
  Receipt Date: 20151016
  Transmission Date: 20160304
  Serious: No
  Sender: FDA-Public Use
  Company Number: US-BAYER-2015-432046

PATIENT
  Age: 71 Year
  Sex: Female

DRUGS (1)
  1. CIPRO [Suspect]
     Active Substance: CIPROFLOXACIN HYDROCHLORIDE
     Indication: URINARY TRACT INFECTION
     Dosage: DAILY DOSE 500 MG
     Route: 048
     Dates: start: 20150924, end: 20150925

REACTIONS (2)
  - Product taste abnormal [None]
  - Nasal discomfort [None]

NARRATIVE: CASE EVENT DATE: 20150925
